FAERS Safety Report 21302042 (Version 2)
Quarter: 2022Q4

REPORT INFORMATION
  Report Type: Report from Study
  Country: US (occurrence: US)
  Receive Date: 20220907
  Receipt Date: 20221014
  Transmission Date: 20230113
  Serious: Yes (Hospitalization, Other)
  Sender: FDA-Public Use
  Company Number: US-BRISTOL-MYERS SQUIBB COMPANY-2022-100800

PATIENT
  Age: 42 Year
  Sex: Male
  Weight: 83 kg

DRUGS (3)
  1. REVLIMID [Suspect]
     Active Substance: LENALIDOMIDE
     Indication: Plasma cell myeloma
     Dosage: DAILY - 21 OF 28 DAYS
     Route: 048
     Dates: start: 20200928
  2. REVLIMID [Suspect]
     Active Substance: LENALIDOMIDE
     Indication: Illness
  3. REVLIMID [Suspect]
     Active Substance: LENALIDOMIDE
     Indication: Anaemia

REACTIONS (2)
  - Cholelithiasis [Unknown]
  - Biliary colic [Unknown]
